FAERS Safety Report 15429949 (Version 1)
Quarter: 2018Q4

REPORT INFORMATION
  Report Type: Spontaneous
  Country: US (occurrence: US)
  Receive Date: 20180926
  Receipt Date: 20180926
  Transmission Date: 20190204
  Serious: No
  Sender: FDA-Public Use
  Company Number: US-TEVA-2018-US-956448

PATIENT
  Sex: Female

DRUGS (1)
  1. SYNRIBO [Suspect]
     Active Substance: OMACETAXINE MEPESUCCINATE
     Indication: CHRONIC MYELOID LEUKAEMIA
     Route: 065
     Dates: start: 2014

REACTIONS (9)
  - Abdominal discomfort [Unknown]
  - Product physical issue [Unknown]
  - Application site irritation [Unknown]
  - Headache [Unknown]
  - Injection site pain [Unknown]
  - Adverse event [Unknown]
  - Application site erythema [Unknown]
  - Vomiting [Unknown]
  - Skin exfoliation [Unknown]
